FAERS Safety Report 13833768 (Version 2)
Quarter: 2017Q3

REPORT INFORMATION
  Report Type: Spontaneous
  Country: DK (occurrence: DK)
  Receive Date: 20170804
  Receipt Date: 20170828
  Transmission Date: 20171127
  Serious: Yes (Congenital Anomaly)
  Sender: FDA-Public Use
  Company Number: DK-LPDUSPRD-20171090

PATIENT
  Age: 1 Day
  Sex: Female

DRUGS (2)
  1. VENOFER [Suspect]
     Active Substance: IRON SUCROSE
     Dosage: 1000 MG
     Route: 064
     Dates: start: 20170714, end: 20170714
  2. VIBEDEN [Concomitant]
     Dosage: UNKNOWN
     Route: 064

REACTIONS (5)
  - Foetal exposure during pregnancy [Unknown]
  - Overdose [Unknown]
  - Bradycardia [Not Recovered/Not Resolved]
  - Incorrect drug administration rate [Unknown]
  - Apgar score low [Not Recovered/Not Resolved]

NARRATIVE: CASE EVENT DATE: 20170714
